FAERS Safety Report 9129078 (Version 1)
Quarter: 2013Q1

REPORT INFORMATION
  Report Type: Report from Study
  Country: US (occurrence: US)
  Receive Date: 20130228
  Receipt Date: 20130228
  Transmission Date: 20140127
  Serious: Yes (Other)
  Sender: FDA-Public Use
  Company Number: US-ABBOTT-13P-163-1053193-00

PATIENT
  Age: 53 Year
  Sex: Female

DRUGS (6)
  1. HUMIRA [Suspect]
     Indication: PSORIASIS
     Dates: start: 20121129, end: 20130131
  2. HUMIRA [Suspect]
     Indication: CROHN^S DISEASE
  3. ATENOLOL [Concomitant]
     Indication: HYPERTENSION
  4. PAROXETINE [Concomitant]
     Indication: DEPRESSION
  5. OMEPRAZOLE [Concomitant]
     Indication: GASTRIC ULCER
  6. LOPERAMIDE [Concomitant]
     Indication: DIARRHOEA

REACTIONS (8)
  - Epistaxis [Not Recovered/Not Resolved]
  - Sinusitis [Unknown]
  - Drug ineffective [Unknown]
  - Crohn^s disease [Unknown]
  - Diarrhoea haemorrhagic [Unknown]
  - Blood count abnormal [Unknown]
  - Urticaria [Unknown]
  - Rash morbilliform [Unknown]
